FAERS Safety Report 15673370 (Version 1)
Quarter: 2018Q4

REPORT INFORMATION
  Report Type: Spontaneous
  Country: US (occurrence: US)
  Receive Date: 20181129
  Receipt Date: 20181129
  Transmission Date: 20190205
  Serious: No
  Sender: FDA-Public Use
  Company Number: US-AMAG PHARMACEUTICALS, INC.-AMAG201804796

PATIENT
  Age: 63 Year
  Sex: Female
  Weight: 66.67 kg

DRUGS (5)
  1. INTRAROSA [Suspect]
     Active Substance: PRASTERONE
     Indication: DYSPAREUNIA
     Dosage: 6.5 MG, UNK
     Route: 067
  2. IRBESARTAN. [Concomitant]
     Active Substance: IRBESARTAN
     Indication: HYPERTENSION
     Dosage: 300 MG, QD
     Route: 048
  3. SYNTHROID [Concomitant]
     Active Substance: LEVOTHYROXINE SODIUM
     Indication: HYPOTHYROIDISM
     Dosage: 112 MCG, QD
     Route: 048
  4. HERBAL EXTRACT NOS [Concomitant]
     Active Substance: HERBALS
     Indication: BLOOD CHOLESTEROL INCREASED
     Dosage: 2 MG, QD
     Route: 048
  5. INTRAROSA [Suspect]
     Active Substance: PRASTERONE
     Indication: VULVOVAGINAL DRYNESS
     Dosage: 6.5 MG, UNK
     Route: 067
     Dates: start: 20180816

REACTIONS (1)
  - Vaginal discharge [Not Recovered/Not Resolved]

NARRATIVE: CASE EVENT DATE: 20180816
